FAERS Safety Report 9639019 (Version 3)
Quarter: 2014Q2

REPORT INFORMATION
  Report Type: Spontaneous
  Country: JP (occurrence: None)
  Receive Date: 20131018
  Receipt Date: 20140424
  Transmission Date: 20141212
  Serious: Yes (Hospitalization)
  Sender: FDA-Public Use
  Company Number: AXC-2013-000543

PATIENT
  Age: 74 Year
  Sex: Female

DRUGS (5)
  1. URSODEOXYCHOLIC ACID [Suspect]
     Indication: PRODUCT USED FOR UNKNOWN INDICATION
     Route: 048
     Dates: start: 20130919, end: 20130928
  2. COSPANON (FLOPROPIONE) [Concomitant]
  3. CRESTOR (ROSUVASTATIN CALCIUM) [Concomitant]
  4. EPADEL-S (EICOSAPENTAENOIC ACID ETHYL ESTER) [Concomitant]
  5. MICARDIS (TELMISARTAN) [Concomitant]

REACTIONS (2)
  - Erythema [None]
  - Generalised erythema [None]
